FAERS Safety Report 9012514 (Version 2)
Quarter: 2013Q3

REPORT INFORMATION
  Report Type: Spontaneous
  Country: US (occurrence: US)
  Receive Date: 20130114
  Receipt Date: 20130911
  Transmission Date: 20140515
  Serious: No
  Sender: FDA-Public Use
  Company Number: US-PFIZER INC-2013012930

PATIENT
  Age: 12 Year
  Sex: Male

DRUGS (2)
  1. AZITHROMYCIN [Suspect]
     Indication: UPPER RESPIRATORY TRACT INFECTION
     Dosage: 500 MG, DAILY
     Route: 048
     Dates: start: 20130103, end: 20130103
  2. AZITHROMYCIN [Suspect]
     Dosage: 250 MG, DAILY
     Route: 048
     Dates: start: 20130104, end: 20130108

REACTIONS (1)
  - Drug screen positive [Unknown]
